FAERS Safety Report 19238211 (Version 2)
Quarter: 2022Q2

REPORT INFORMATION
  Report Type: Spontaneous
  Country: US (occurrence: US)
  Receive Date: 20210510
  Receipt Date: 20220421
  Transmission Date: 20220721
  Serious: No
  Sender: FDA-Public Use
  Company Number: US-GLENMARK PHARMACEUTICALS-2021GMK051907

PATIENT

DRUGS (2)
  1. CLOBETASOL PROPIONATE [Suspect]
     Active Substance: CLOBETASOL PROPIONATE
     Indication: Product used for unknown indication
     Dosage: UNK (USING FROM LONG TIME)
     Route: 061
  2. CLOBETASOL PROPIONATE [Suspect]
     Active Substance: CLOBETASOL PROPIONATE
     Dosage: UNK (DEFECTIVE PRODUCT)
     Route: 061

REACTIONS (6)
  - Extra dose administered [Unknown]
  - Accidental exposure to product [Unknown]
  - Skin exfoliation [Unknown]
  - Dry skin [Unknown]
  - Product container issue [Unknown]
  - Product quality issue [Unknown]

NARRATIVE: CASE EVENT DATE: 20210101
